FAERS Safety Report 4751853-9 (Version None)
Quarter: 2005Q3

REPORT INFORMATION
  Report Type: 
  Country: None (occurrence: None)
  Receive Date: 20050822
  Receipt Date: 20050612
  Transmission Date: 20060218
  Serious: No
  Sender: FDA-Public Use
  Company Number: PHEH2005US06626

PATIENT
  Sex: Female

DRUGS (2)
  1. ZELNORM [Suspect]
     Dates: start: 20050603
  2. MIRALAX [Concomitant]

REACTIONS (3)
  - CONJUNCTIVAL HAEMORRHAGE [None]
  - DRUG INEFFECTIVE [None]
  - URTICARIA [None]
